FAERS Safety Report 18020299 (Version 2)
Quarter: 2020Q3

REPORT INFORMATION
  Report Type: Spontaneous
  Country: KR (occurrence: KR)
  Receive Date: 20200714
  Receipt Date: 20200911
  Transmission Date: 20201103
  Serious: No
  Sender: FDA-Public Use
  Company Number: KR-GLAXOSMITHKLINE-KR2020121711

PATIENT
  Sex: Male

DRUGS (1)
  1. NICOTINELL TTS 30 [Suspect]
     Active Substance: NICOTINE
     Indication: SMOKING CESSATION THERAPY
     Dosage: UNK

REACTIONS (3)
  - Pollakiuria [Unknown]
  - Product complaint [Unknown]
  - Product use issue [Unknown]
